FAERS Safety Report 5964555-8 (Version None)
Quarter: 2008Q4

REPORT INFORMATION
  Report Type: 
  Country: None (occurrence: None)
  Receive Date: 20081119
  Receipt Date: 20081104
  Transmission Date: 20090506
  Serious: Yes (Hospitalization)
  Sender: FDA-Public Use
  Company Number: 2008S1019767

PATIENT
  Age: 56 Year
  Sex: Female

DRUGS (4)
  1. NIMESULIDE (NIMESULIDE) [Suspect]
  2. DIAZEPAM [Suspect]
  3. TROSPIUM CHLORIDE (TROSPIUM CHLORIDE) [Suspect]
  4. LOSARTAN POTASSIUM [Suspect]

REACTIONS (2)
  - ACUTE HEPATIC FAILURE [None]
  - HEPATOTOXICITY [None]
